FAERS Safety Report 20044731 (Version 1)
Quarter: 2021Q4

REPORT INFORMATION
  Report Type: Spontaneous
  Country: US (occurrence: US)
  Receive Date: 20211108
  Receipt Date: 20211108
  Transmission Date: 20220303
  Serious: No
  Sender: FDA-Public Use
  Company Number: US-PFIZER INC-2020384043

PATIENT
  Age: 58 Year
  Sex: Female
  Weight: 57.79 kg

DRUGS (4)
  1. CHANTIX [Suspect]
     Active Substance: VARENICLINE TARTRATE
     Indication: Tobacco abuse
     Dosage: UNK, DAILY (0.5 MG X 11 + 1 MG X 42 ORALLY/ EVERY DAY 30 DAYS)
     Route: 048
     Dates: start: 2020
  2. CHANTIX [Suspect]
     Active Substance: VARENICLINE TARTRATE
     Dosage: UNK (1 MG ORALLY)
     Route: 048
  3. CHANTIX [Suspect]
     Active Substance: VARENICLINE TARTRATE
     Dosage: UNK (CONTINUING PACK)
  4. AMLODIPINE [Concomitant]
     Active Substance: AMLODIPINE BESYLATE
     Indication: Blood pressure abnormal
     Dosage: 5 MG, 1X/DAY

REACTIONS (3)
  - Tobacco user [Unknown]
  - Product prescribing error [Unknown]
  - Product dose omission issue [Unknown]
